FAERS Safety Report 10592573 (Version 1)
Quarter: 2014Q4

REPORT INFORMATION
  Report Type: Spontaneous
  Country: US (occurrence: None)
  Receive Date: 20141117
  Receipt Date: 20141117
  Transmission Date: 20150529
  Serious: Yes (Other)
  Sender: FDA-Public Use
  Company Number: ADR-2014-02107

PATIENT
  Age: 41 Year
  Sex: Male

DRUGS (1)
  1. BACLOFEN. [Suspect]
     Active Substance: BACLOFEN
     Indication: MUSCLE SPASMS
     Dosage: EVERY NIGHT

REACTIONS (7)
  - Thinking abnormal [None]
  - Feeling abnormal [None]
  - Somnolence [None]
  - Suicidal ideation [None]
  - Self injurious behaviour [None]
  - Hypersomnia [None]
  - Depression [None]

NARRATIVE: CASE EVENT DATE: 20140101
